FAERS Safety Report 7871292-1 (Version None)
Quarter: 2011Q4

REPORT INFORMATION
  Report Type: 
  Country: None (occurrence: None)
  Receive Date: 20111029
  Receipt Date: 20110228
  Transmission Date: 20120403
  Serious: No
  Sender: FDA-Public Use
  Company Number: US-AMGEN-USASP2011011533

PATIENT
  Age: 59 Year
  Sex: Female

DRUGS (1)
  1. ENBREL [Suspect]
     Indication: RHEUMATOID ARTHRITIS
     Dosage: 50 MG, QWK
     Dates: start: 20030501

REACTIONS (5)
  - INCREASED UPPER AIRWAY SECRETION [None]
  - BRONCHITIS [None]
  - COUGH [None]
  - RHINORRHOEA [None]
  - SPUTUM RETENTION [None]
